FAERS Safety Report 5873896-4 (Version None)
Quarter: 2008Q3

REPORT INFORMATION
  Report Type: 
  Country: None (occurrence: None)
  Receive Date: 20080908
  Receipt Date: 20080829
  Transmission Date: 20090109
  Serious: Yes (Hospitalization)
  Sender: FDA-Public Use
  Company Number: JP-ASTRAZENECA-2008AP06751

PATIENT
  Age: 0 Year
  Sex: Male

DRUGS (5)
  1. PULMICORT RESPULES [Suspect]
     Indication: ASTHMA
     Route: 055
     Dates: start: 20080427, end: 20080509
  2. ONON [Concomitant]
     Dosage: DOSE UNKNOWN
     Route: 048
     Dates: start: 20080427
  3. HOKUNALIN:TAPE [Concomitant]
     Indication: ASTHMA
     Dosage: DOSE UNKNOWN
     Route: 062
     Dates: start: 20080427
  4. MEPTIN INHALATION SOLUTION [Concomitant]
     Indication: ASTHMA
     Dosage: DOSE UNKNOWN
     Route: 055
     Dates: start: 20080430
  5. INTAL [Concomitant]
     Dosage: DOSE UNKNOWN
     Route: 055
     Dates: start: 20080430

REACTIONS (3)
  - COUGH [None]
  - DYSPHONIA [None]
  - ILL-DEFINED DISORDER [None]
